FAERS Safety Report 24361427 (Version 2)
Quarter: 2024Q4

REPORT INFORMATION
  Report Type: Report from Study
  Country: US (occurrence: US)
  Receive Date: 20240925
  Receipt Date: 20241020
  Transmission Date: 20250114
  Serious: Yes (Hospitalization, Other)
  Sender: ABBVIE
  Company Number: US-ABBVIE-5932261

PATIENT
  Sex: Female
  Weight: 39 kg

DRUGS (3)
  1. HUMIRA [Suspect]
     Active Substance: ADALIMUMAB
     Indication: Rheumatoid arthritis
     Dosage: FORM STRENGTH : 40 MG
     Route: 058
     Dates: start: 2019, end: 2024
  2. HUMIRA [Suspect]
     Active Substance: ADALIMUMAB
     Dosage: FORM STRENGTH : 40 MG
     Route: 058
     Dates: end: 2017
  3. HUMIRA [Suspect]
     Active Substance: ADALIMUMAB
     Route: 058
     Dates: start: 2024

REACTIONS (8)
  - Intestinal obstruction [Recovered/Resolved]
  - Colonic abscess [Recovered/Resolved]
  - Injection site haemorrhage [Recovered/Resolved]
  - Injection site discharge [Not Recovered/Not Resolved]
  - Device leakage [Unknown]
  - Device issue [Unknown]
  - Weight decreased [Recovering/Resolving]
  - Arthralgia [Recovering/Resolving]

NARRATIVE: CASE EVENT DATE: 20190101
